FAERS Safety Report 21394442 (Version 1)
Quarter: 2022Q3

REPORT INFORMATION
  Report Type: Report from Study
  Country: CL (occurrence: CL)
  Receive Date: 20220930
  Receipt Date: 20220930
  Transmission Date: 20221026
  Serious: Yes (Other)
  Sender: FDA-Public Use
  Company Number: CL-NOVARTISPH-NVSC2022CL210482

PATIENT
  Age: 65 Year
  Sex: Female

DRUGS (1)
  1. COSENTYX [Suspect]
     Active Substance: SECUKINUMAB
     Indication: Psoriatic arthropathy
     Dosage: 300 MG, QW
     Route: 058
     Dates: start: 20220908

REACTIONS (14)
  - Diabetes mellitus [Unknown]
  - Bone pain [Unknown]
  - Sleep disorder [Unknown]
  - Visual impairment [Unknown]
  - Eye pruritus [Unknown]
  - Eye irritation [Unknown]
  - Ocular hyperaemia [Unknown]
  - Eye discharge [Unknown]
  - Ocular discomfort [Unknown]
  - Ear pruritus [Unknown]
  - Hypertension [Unknown]
  - Pruritus [Unknown]
  - Ear pain [Unknown]
  - Conjunctivitis [Unknown]

NARRATIVE: CASE EVENT DATE: 20220922
